FAERS Safety Report 4561860-7 (Version None)
Quarter: 2005Q1

REPORT INFORMATION
  Report Type: 
  Country: None (occurrence: None)
  Receive Date: 20050125
  Receipt Date: 20050114
  Transmission Date: 20050727
  Serious: Yes (Other)
  Sender: FDA-Public Use
  Company Number: USA-2002-0001713

PATIENT
  Age: 33 Year
  Sex: Male

DRUGS (4)
  1. OXYCONTIN [Suspect]
  2. COCAINE (COCAINE) [Suspect]
  3. VICODIN [Suspect]
  4. VALIUM [Suspect]

REACTIONS (4)
  - EUPHORIC MOOD [None]
  - PHYSICAL ASSAULT [None]
  - POLYSUBSTANCE ABUSE [None]
  - ROAD TRAFFIC ACCIDENT [None]
